FAERS Safety Report 7439328-X (Version None)
Quarter: 2011Q2

REPORT INFORMATION
  Report Type: 
  Country: None (occurrence: None)
  Receive Date: 20110427
  Receipt Date: 20110421
  Transmission Date: 20111010
  Serious: Yes (Other)
  Sender: FDA-Public Use
  Company Number: US-PFIZER INC-US-WYE-H05071008

PATIENT
  Sex: Female
  Weight: 71 kg

DRUGS (1)
  1. PREMPRO [Suspect]
     Indication: HORMONE REPLACEMENT THERAPY
     Dosage: 0.625/2.5 MG; 0.3/1.5 MG
     Route: 048
     Dates: start: 19980101, end: 20050818

REACTIONS (1)
  - BREAST CANCER FEMALE [None]
